FAERS Safety Report 18063266 (Version 2)
Quarter: 2021Q3

REPORT INFORMATION
  Report Type: Spontaneous
  Country: US (occurrence: US)
  Receive Date: 20200724
  Receipt Date: 20210907
  Transmission Date: 20211014
  Serious: Yes (Hospitalization)
  Sender: FDA-Public Use
  Company Number: US-AUROBINDO-AUR-APL-2020-036308

PATIENT
  Age: 86 Year
  Sex: Male

DRUGS (5)
  1. CALCITONIN [Suspect]
     Active Substance: CALCITONIN
     Indication: HYPERCALCAEMIA
     Dosage: UNK
     Route: 065
  2. FUROSEMIDE. [Suspect]
     Active Substance: FUROSEMIDE
     Indication: HYPERCALCAEMIA
     Dosage: UNK
     Route: 065
  3. BENDAMUSTINE [Concomitant]
     Active Substance: BENDAMUSTINE
     Indication: CHEMOTHERAPY
     Dosage: UNK
     Route: 065
  4. ZOLEDRONIC ACID [Suspect]
     Active Substance: ZOLEDRONIC ACID
     Indication: HYPERCALCAEMIA
     Dosage: UNK
     Route: 065
  5. RITUXIMAB. [Concomitant]
     Active Substance: RITUXIMAB
     Indication: CHEMOTHERAPY
     Dosage: UNK
     Route: 065

REACTIONS (1)
  - Drug ineffective [Unknown]
